FAERS Safety Report 8316664-6 (Version None)
Quarter: 2012Q2

REPORT INFORMATION
  Report Type: 
  Country: None (occurrence: None)
  Receive Date: 20120427
  Receipt Date: 20120424
  Transmission Date: 20120825
  Serious: Yes (Other)
  Sender: FDA-Public Use
  Company Number: PHEH2006US02525

PATIENT
  Sex: Female
  Weight: 72.562 kg

DRUGS (18)
  1. AREDIA [Suspect]
     Indication: METASTASES TO BONE
     Dosage: 60 MG, QMO
     Route: 042
     Dates: start: 19981101, end: 20021219
  2. ARIMIDEX [Concomitant]
     Indication: BREAST CANCER
  3. FEMARA [Concomitant]
     Indication: BREAST CANCER
     Dosage: 2.5 MG, QD
     Route: 048
     Dates: start: 19981101
  4. LEVOTHROID [Concomitant]
     Dosage: 1 MG, QD
     Route: 048
  5. ZOMETA [Suspect]
     Indication: METASTASES TO BONE
     Dosage: 4 MG, QMO
     Route: 042
     Dates: start: 20030115, end: 20061001
  6. BELLAMINE S [Concomitant]
     Route: 048
  7. RESTORIL [Concomitant]
  8. DIPHENOXYLATE HCL AND ATROPINE SULFATE [Concomitant]
     Dosage: 1 DF, BID
     Route: 048
  9. GLUCOSAMINE HYDROCHLORIDE [Concomitant]
     Dosage: 500 MG
     Route: 048
  10. CALCIUM [Concomitant]
     Dosage: 1500 MG, QD
     Route: 048
  11. HYDROXYZINE [Concomitant]
  12. IMODIUM [Concomitant]
  13. SYNTHROID [Concomitant]
     Dosage: 10 MG, QD
     Route: 048
  14. OXYGEN THERAPY [Suspect]
  15. ROBAXIN [Concomitant]
  16. TAMOXIFEN CITRATE [Concomitant]
     Indication: BREAST CANCER
  17. PROZAC [Concomitant]
     Indication: DEPRESSION
     Dosage: 20 MG, QD
     Route: 048
  18. MULTI-VITAMINS [Concomitant]

REACTIONS (65)
  - TOOTH DISORDER [None]
  - ORAL DISORDER [None]
  - ORAL INFECTION [None]
  - PAIN IN JAW [None]
  - CHEILITIS [None]
  - APPENDICITIS [None]
  - ASTHENIA [None]
  - LIVER DISORDER [None]
  - INTERVERTEBRAL DISC SPACE NARROWING [None]
  - OSTEONECROSIS OF JAW [None]
  - ANXIETY [None]
  - X-RAY ABNORMAL [None]
  - IMPAIRED HEALING [None]
  - INTERVERTEBRAL DISC PROTRUSION [None]
  - HYPOTHYROIDISM [None]
  - CEREBRAL ISCHAEMIA [None]
  - HAEMORRHOIDS [None]
  - METASTASES TO SOFT TISSUE [None]
  - ASTHMA [None]
  - BLOOD HOMOCYSTEINE INCREASED [None]
  - PAIN IN EXTREMITY [None]
  - SACROILIITIS [None]
  - CONSTIPATION [None]
  - GASTROINTESTINAL HAEMORRHAGE [None]
  - CATARACT [None]
  - MITRAL VALVE INCOMPETENCE [None]
  - CARDIAC MURMUR [None]
  - BREAST CALCIFICATIONS [None]
  - ATROPHIC VULVOVAGINITIS [None]
  - LUMBAR SPINAL STENOSIS [None]
  - PAIN [None]
  - ABSCESS JAW [None]
  - BONE EROSION [None]
  - ORAL DISCOMFORT [None]
  - UPPER RESPIRATORY TRACT INFECTION [None]
  - PALLOR [None]
  - CONJUNCTIVAL PALLOR [None]
  - LIGAMENT DISORDER [None]
  - URINARY INCONTINENCE [None]
  - BACK PAIN [None]
  - INFLAMMATION [None]
  - STOMATITIS [None]
  - OSTEOARTHRITIS [None]
  - FOOT FRACTURE [None]
  - LIVER FUNCTION TEST ABNORMAL [None]
  - ARTHROPATHY [None]
  - DYSLIPIDAEMIA [None]
  - ANAEMIA [None]
  - ISCHIORECTAL HERNIA [None]
  - VESTIBULITIS [None]
  - INJURY [None]
  - DEPRESSION [None]
  - CARDIAC FAILURE CONGESTIVE [None]
  - SINUSITIS [None]
  - FATIGUE [None]
  - FACET JOINT SYNDROME [None]
  - CELLULITIS [None]
  - DYSPAREUNIA [None]
  - BONE DISORDER [None]
  - RIB FRACTURE [None]
  - EXOSTOSIS [None]
  - VISUAL FIELD DEFECT [None]
  - SEASONAL ALLERGY [None]
  - HYPERCHOLESTEROLAEMIA [None]
  - GASTRIC ULCER [None]
